FAERS Safety Report 5557958-7 (Version None)
Quarter: 2007Q4

REPORT INFORMATION
  Report Type: 
  Country: None (occurrence: None)
  Receive Date: 20071214
  Receipt Date: 20071114
  Transmission Date: 20080405
  Serious: Yes (Hospitalization)
  Sender: FDA-Public Use
  Company Number: CZ-ROCHE-535726

PATIENT
  Sex: Male
  Weight: 110 kg

DRUGS (1)
  1. XENICAL [Suspect]
     Indication: OBESITY
     Dosage: 3 TABLESPOONS DAILY
     Route: 048
     Dates: start: 20060415

REACTIONS (1)
  - DEATH [None]
